FAERS Safety Report 18425781 (Version 1)
Quarter: 2020Q4

REPORT INFORMATION
  Report Type: Spontaneous
  Country: US (occurrence: US)
  Receive Date: 20201026
  Receipt Date: 20201026
  Transmission Date: 20210114
  Serious: Yes (Other)
  Sender: FDA-Public Use
  Company Number: US-AMGEN-USASP2020170664

PATIENT
  Age: 76 Year
  Sex: Female

DRUGS (4)
  1. DEXAMETHASONE. [Concomitant]
     Active Substance: DEXAMETHASONE
     Indication: PLASMA CELL MYELOMA
     Dosage: 40 MILLIGRAM, QWK / 10 MG
     Route: 048
     Dates: start: 2016
  2. CARFILZOMIB [Suspect]
     Active Substance: CARFILZOMIB
     Indication: PLASMA CELL MYELOMA
     Dosage: 20 MILLIGRAM/SQ. METER, DAY I OF CYCLE ONE AS A 30-MINUTE
     Route: 042
     Dates: start: 201603
  3. CARFILZOMIB [Suspect]
     Active Substance: CARFILZOMIB
     Dosage: 70 MILLIGRAM/SQ. METER, ON DAYS 8 AND 15 OF A 28 DAY CYCLE
     Route: 042
     Dates: start: 2016
  4. CARFILZOMIB [Suspect]
     Active Substance: CARFILZOMIB
     Dosage: 70 MILLIGRAM/SQ. METER, ON DAYS 1 AND 15 EVERY 28 DAYS
     Route: 042
     Dates: start: 2016

REACTIONS (4)
  - Nausea [Unknown]
  - Thrombocytopenia [Unknown]
  - Hair texture abnormal [Unknown]
  - Hair growth abnormal [Unknown]

NARRATIVE: CASE EVENT DATE: 2016
